FAERS Safety Report 7122022-2 (Version None)
Quarter: 2010Q4

REPORT INFORMATION
  Report Type: 
  Country: None (occurrence: None)
  Receive Date: 20101124
  Receipt Date: 20101122
  Transmission Date: 20110411
  Serious: Yes (Hospitalization)
  Sender: FDA-Public Use
  Company Number: A0894527A

PATIENT
  Age: 88 Year
  Sex: Female

DRUGS (6)
  1. ADVAIR [Suspect]
     Indication: CHRONIC OBSTRUCTIVE PULMONARY DISEASE
     Dosage: 1PUFF TWICE PER DAY
     Route: 055
  2. SPIRIVA [Concomitant]
  3. FLONASE [Concomitant]
  4. SYNTHROID [Concomitant]
  5. VITAMINS [Concomitant]
  6. VENTOLIN [Concomitant]

REACTIONS (9)
  - BLINDNESS [None]
  - DRY SKIN [None]
  - ENERGY INCREASED [None]
  - FLATULENCE [None]
  - HEART RATE INCREASED [None]
  - ILL-DEFINED DISORDER [None]
  - PNEUMONIA [None]
  - PRURITUS [None]
  - VISION BLURRED [None]
